FAERS Safety Report 23195822 (Version 1)
Quarter: 2023Q4

REPORT INFORMATION
  Report Type: Other
  Country: CN (occurrence: None)
  Receive Date: 20231117
  Receipt Date: 20231117
  Transmission Date: 20240110
  Serious: Yes (Other)
  Sender: FDA-Public Use
  Company Number: CN-ROCHE-3455324

PATIENT
  Age: 56 Year
  Sex: Female

DRUGS (8)
  1. ATEZOLIZUMAB [Suspect]
     Active Substance: ATEZOLIZUMAB
     Indication: Carcinoid tumour pulmonary
     Dosage: FOR 2 CYCLES
     Route: 065
  2. ETOPOSIDE [Suspect]
     Active Substance: ETOPOSIDE
     Indication: Carcinoid tumour pulmonary
     Dosage: FOR 2 CYCLES
     Route: 065
  3. CARBOPLATIN [Suspect]
     Active Substance: CARBOPLATIN
     Indication: Carcinoid tumour pulmonary
     Dosage: FOR 2 CYCLES
     Route: 065
  4. PACLITAXEL [Concomitant]
     Active Substance: PACLITAXEL
     Dosage: FOR 1 CYCLE
  5. TEMOZOLOMIDE [Concomitant]
     Active Substance: TEMOZOLOMIDE
     Dosage: FOR 3 CYCLES
  6. CAPECITABINE [Concomitant]
     Active Substance: CAPECITABINE
     Dosage: FOR 3 CYCLES
  7. PACLITAXEL [Concomitant]
     Active Substance: PACLITAXEL
     Dosage: FOR 7 MONTHS
  8. EVEROLIMUS [Concomitant]
     Active Substance: EVEROLIMUS
     Dosage: FOR 7 MONTHS
     Route: 048

REACTIONS (1)
  - Disease progression [Recovered/Resolved]
